FAERS Safety Report 26005692 (Version 1)
Quarter: 2025Q4

REPORT INFORMATION
  Report Type: Spontaneous
  Country: GB (occurrence: GB)
  Receive Date: 20251106
  Receipt Date: 20251106
  Transmission Date: 20260118
  Serious: Yes (Life-Threatening, Hospitalization, Disabling, Other)
  Sender: AUROBINDO
  Company Number: GB-MHRA-MED-202507231350432930-ZNRJL

PATIENT
  Age: 65 Year
  Sex: Male
  Weight: 94 kg

DRUGS (2)
  1. OXALIPLATIN [Suspect]
     Active Substance: OXALIPLATIN
     Indication: Adverse drug reaction
     Dosage: 165 MILLIGRAM (165 MG IV INFUSION 4 WEEKLY)
     Route: 042
     Dates: start: 20250228
  2. LORAZEPAM [Concomitant]
     Active Substance: LORAZEPAM
     Indication: Product used for unknown indication
     Dosage: 1 MILLIGRAM
     Route: 065

REACTIONS (6)
  - Seizure [Recovered/Resolved]
  - Syncope [Unknown]
  - Urine output decreased [Unknown]
  - Loss of consciousness [Recovering/Resolving]
  - Fatigue [Unknown]
  - Decreased appetite [Unknown]

NARRATIVE: CASE EVENT DATE: 20250621
